FAERS Safety Report 4948233-X (Version None)
Quarter: 2006Q1

REPORT INFORMATION
  Report Type: 
  Country: None (occurrence: None)
  Receive Date: 20060320
  Receipt Date: 20060310
  Transmission Date: 20060701
  Serious: Yes (Other)
  Sender: FDA-Public Use
  Company Number: US-KINGPHARMUSA00001-K200600326

PATIENT
  Age: 62 Year
  Sex: Female

DRUGS (2)
  1. ALTACE [Suspect]
     Indication: HYPERTENSION
     Dosage: 2.5 MG, QD
     Route: 048
     Dates: start: 20051015, end: 20051017
  2. AMILORID NM PHARMA [Concomitant]
     Indication: HYPERTENSION
     Dosage: UNK, UNK
     Route: 048

REACTIONS (3)
  - EYELID OEDEMA [None]
  - FACE OEDEMA [None]
  - FLUSHING [None]
